FAERS Safety Report 10551975 (Version 2)
Quarter: 2015Q1

REPORT INFORMATION
  Report Type: Spontaneous
  Country: US (occurrence: None)
  Receive Date: 20141027
  Receipt Date: 20150116
  Transmission Date: 20150720
  Serious: Yes (Other)
  Sender: FDA-Public Use
  Company Number: 2014CVI00037

PATIENT
  Age: 5 Week
  Sex: Female

DRUGS (4)
  1. RANITIDINE [Suspect]
     Active Substance: RANITIDINE\RANITIDINE HYDROCHLORIDE
     Indication: INFANTILE SPITTING UP
  2. PROTEIN HYDROLYSATE [Suspect]
     Active Substance: PROTEIN HYDROLYSATE
     Indication: VOMITING PROJECTILE
  3. RANITIDINE [Suspect]
     Active Substance: RANITIDINE\RANITIDINE HYDROCHLORIDE
     Indication: RETCHING
  4. RANITIDINE [Suspect]
     Active Substance: RANITIDINE\RANITIDINE HYDROCHLORIDE
     Indication: GASTROOESOPHAGEAL REFLUX DISEASE

REACTIONS (2)
  - Anal fissure [None]
  - Haematochezia [None]

NARRATIVE: CASE EVENT DATE: 201410
